FAERS Safety Report 7287469-2 (Version None)
Quarter: 2011Q1

REPORT INFORMATION
  Report Type: 
  Country: None (occurrence: None)
  Receive Date: 20110211
  Receipt Date: 20110201
  Transmission Date: 20110831
  Serious: Yes (Other)
  Sender: FDA-Public Use
  Company Number: CA-JNJFOC-20110201398

PATIENT
  Sex: Female
  Weight: 55 kg

DRUGS (4)
  1. VITAMIN B-12 [Concomitant]
     Route: 065
  2. MULTI-VITAMINS [Concomitant]
     Route: 065
  3. IMURAN [Concomitant]
     Route: 048
  4. REMICADE [Suspect]
     Indication: CROHN'S DISEASE
     Route: 042

REACTIONS (5)
  - DECREASED APPETITE [None]
  - ANAL FISTULA [None]
  - ANAL ABSCESS [None]
  - FATIGUE [None]
  - OEDEMA PERIPHERAL [None]
